FAERS Safety Report 21131167 (Version 1)
Quarter: 2022Q3

REPORT INFORMATION
  Report Type: Report from Study
  Country: US (occurrence: US)
  Receive Date: 20220726
  Receipt Date: 20220726
  Transmission Date: 20221026
  Serious: Yes (Other)
  Sender: FDA-Public Use
  Company Number: US-CELGENE-USA-20220201732

PATIENT
  Age: 55 Year
  Sex: Female
  Weight: 97.98 kg

DRUGS (2)
  1. REVLIMID [Suspect]
     Active Substance: LENALIDOMIDE
     Indication: Plasma cell myeloma
     Dosage: 10 MILLIGRAM
     Route: 048
     Dates: start: 201911
  2. REVLIMID [Suspect]
     Active Substance: LENALIDOMIDE
     Dosage: 5 MILLIGRAM I CAPSULE DAILY BY MOUTH. STRENGTH: 5 MG CAPS-28/BTL.
     Route: 048
     Dates: start: 202009

REACTIONS (1)
  - Neuropathy peripheral [Unknown]
